FAERS Safety Report 25212398 (Version 3)
Quarter: 2025Q4

REPORT INFORMATION
  Report Type: Report from Study
  Country: US (occurrence: None)
  Receive Date: 20250418
  Receipt Date: 20251103
  Transmission Date: 20260118
  Serious: Yes (Other)
  Sender: UCB
  Company Number: US-UCBSA-2025022749

PATIENT
  Age: 20 Year
  Weight: 52.4 kg

DRUGS (8)
  1. FENFLURAMINE [Suspect]
     Active Substance: FENFLURAMINE
     Indication: Lennox-Gastaut syndrome
     Dosage: UNK
  2. FENFLURAMINE [Suspect]
     Active Substance: FENFLURAMINE
     Dosage: 5 MILLILITER, 2X/DAY (BID)
  3. FENFLURAMINE [Suspect]
     Active Substance: FENFLURAMINE
     Dosage: 0.42 MG/KG/DAY TO A TOTAL OF 22 MG/DAY
  4. FENFLURAMINE [Suspect]
     Active Substance: FENFLURAMINE
     Dosage: 5 MILLILITER, 2X/DAY (BID)
  5. CENOBAMATE [Concomitant]
     Active Substance: CENOBAMATE
     Indication: Lennox-Gastaut syndrome
     Dosage: 150 MILLIGRAM, ONCE DAILY (QD)
  6. CENOBAMATE [Concomitant]
     Active Substance: CENOBAMATE
     Dosage: 100 MILLIGRAM, ONCE DAILY (QD)
  7. DIVALPROEX SODIUM [Concomitant]
     Active Substance: DIVALPROEX SODIUM
     Indication: Lennox-Gastaut syndrome
     Dosage: 500 MILLIGRAM, 2X/DAY (BID)
  8. MIRENA [Concomitant]
     Active Substance: LEVONORGESTREL
     Indication: Product used for unknown indication
     Dosage: 52 MG (20 MCG/DAY) IUD

REACTIONS (3)
  - Seizure [Not Recovered/Not Resolved]
  - Mitral valve incompetence [Unknown]
  - Tricuspid valve incompetence [Unknown]
